FAERS Safety Report 8968474 (Version 4)
Quarter: 2013Q2

REPORT INFORMATION
  Report Type: Report from Study
  Country: US (occurrence: US)
  Receive Date: 20121217
  Receipt Date: 20130402
  Transmission Date: 20140414
  Serious: No
  Sender: FDA-Public Use
  Company Number: US-VERTEX PHARMACEUTICALS INC.-2012-026008

PATIENT
  Age: 65 Year
  Sex: Male
  Weight: 104 kg

DRUGS (7)
  1. VX-950 (TELAPREVIR) [Suspect]
     Indication: HEPATITIS C
     Dosage: 750 MG, TID
     Route: 048
     Dates: start: 20121106
  2. RIBAVIRIN [Suspect]
     Indication: HEPATITIS C
     Dosage: 600 MG, BID
     Route: 048
     Dates: start: 20121106
  3. RIBAVIRIN [Suspect]
     Dosage: UNK
  4. PEGASYS [Suspect]
     Indication: HEPATITIS C
     Dosage: 180 ?G, QW
     Route: 058
     Dates: start: 20121106, end: 20121129
  5. PEGASYS [Suspect]
     Dosage: 135 ?G, QW
     Route: 058
     Dates: start: 20121130, end: 20121206
  6. PEGASYS [Suspect]
     Dosage: 90 ?G, QW
     Route: 058
     Dates: start: 20121207
  7. LOSARTAN [Concomitant]
     Indication: HYPERTENSION

REACTIONS (4)
  - Rash papular [Recovered/Resolved]
  - Thrombocytopenia [Recovered/Resolved]
  - Haemoglobin decreased [Recovered/Resolved]
  - Pruritus [Unknown]
